FAERS Safety Report 5920845-6 (Version None)
Quarter: 2008Q4

REPORT INFORMATION
  Report Type: 
  Country: None (occurrence: None)
  Receive Date: 20081016
  Receipt Date: 20081010
  Transmission Date: 20090506
  Serious: Yes (Other)
  Sender: FDA-Public Use
  Company Number: US-ELI_LILLY_AND_COMPANY-US200810002777

PATIENT
  Sex: Male

DRUGS (3)
  1. STRATTERA [Suspect]
     Indication: ATTENTION DEFICIT/HYPERACTIVITY DISORDER
     Dosage: 100 MG, DAILY (1/D)
     Route: 065
     Dates: start: 20080207
  2. FISH OIL [Concomitant]
     Dosage: UNK, UNKNOWN
     Route: 065
     Dates: start: 20080225
  3. ANDROGEL [Concomitant]
     Dosage: 5 G, UNKNOWN
     Route: 061
     Dates: start: 20080530

REACTIONS (1)
  - SECONDARY HYPOGONADISM [None]
